FAERS Safety Report 6871515-1 (Version None)
Quarter: 2010Q3

REPORT INFORMATION
  Report Type: 
  Country: None (occurrence: None)
  Receive Date: 20100723
  Receipt Date: 20100713
  Transmission Date: 20110219
  Serious: No
  Sender: FDA-Public Use
  Company Number: US-ROXANE LABORATORIES, INC.-2010-RO-00878RO

PATIENT
  Age: 43 Year
  Sex: Female

DRUGS (1)
  1. LITHIUM CARBONATE [Suspect]
     Indication: BIPOLAR DISORDER
     Dosage: 900 MG
     Route: 048
     Dates: start: 20001201

REACTIONS (3)
  - HYPERTHYROIDISM [None]
  - URINE ABNORMALITY [None]
  - URINE COLOUR ABNORMAL [None]
